FAERS Safety Report 24186662 (Version 1)
Quarter: 2024Q3

REPORT INFORMATION
  Report Type: Report from Study
  Country: RU (occurrence: None)
  Receive Date: 20240808
  Receipt Date: 20240808
  Transmission Date: 20241017
  Serious: Yes (Hospitalization, Other)
  Sender: ASTRAZENECA
  Company Number: 2019SF68089

PATIENT
  Age: 46 Year
  Sex: Male
  Weight: 75 kg

DRUGS (5)
  1. BRILINTA [Suspect]
     Active Substance: TICAGRELOR
     Indication: Myocardial infarction
     Route: 048
     Dates: start: 201908
  2. OMEPRAZOLE [Concomitant]
     Active Substance: OMEPRAZOLE
  3. MEDICAL FOOD [Concomitant]
     Active Substance: MEDICAL FOOD
     Dosage: DURING 3 WEEKS
  4. CREON [Concomitant]
     Active Substance: PANCRELIPASE AMYLASE\PANCRELIPASE LIPASE\PANCRELIPASE PROTEASE
  5. ASPIRIN [Concomitant]
     Active Substance: ASPIRIN

REACTIONS (15)
  - Phaeochromocytoma [Unknown]
  - Abdominal pain upper [Unknown]
  - Hepatitis C [Unknown]
  - Hepatic cirrhosis [Unknown]
  - Cholelithiasis [Unknown]
  - Gallbladder disorder [Unknown]
  - Intestinal haemorrhage [Unknown]
  - Diarrhoea haemorrhagic [Unknown]
  - Immune system disorder [Unknown]
  - Haemorrhage [Unknown]
  - Vomiting [Unknown]
  - Haemorrhoids [Unknown]
  - Decreased appetite [Unknown]
  - Nausea [Unknown]
  - Off label use [Unknown]

NARRATIVE: CASE EVENT DATE: 20190901
